FAERS Safety Report 6310429-2 (Version None)
Quarter: 2009Q3

REPORT INFORMATION
  Report Type: 
  Country: None (occurrence: None)
  Receive Date: 20090814
  Receipt Date: 20090803
  Transmission Date: 20100115
  Serious: Yes (Other)
  Sender: FDA-Public Use
  Company Number: BR-PFIZER INC-2009249332

PATIENT
  Age: 64 Year

DRUGS (3)
  1. CHAMPIX [Suspect]
     Indication: TOBACCO USER
     Dosage: 1 MG, 2X/DAY
     Route: 048
     Dates: start: 20080101
  2. CALCIUM [Concomitant]
     Indication: OSTEOPOROSIS
     Dosage: UNK
  3. EUTHYROX [Concomitant]
     Indication: HYPOTHYROIDISM
     Dosage: 75 MG, UNK
     Dates: start: 20020101

REACTIONS (3)
  - ABNORMAL DREAMS [None]
  - INSOMNIA [None]
  - OEDEMA PERIPHERAL [None]
